FAERS Safety Report 22318455 (Version 1)
Quarter: 2023Q2

REPORT INFORMATION
  Report Type: Spontaneous
  Country: US (occurrence: None)
  Receive Date: 20230512
  Receipt Date: 20230512
  Transmission Date: 20230722
  Serious: No
  Sender: FDA-Public Use
  Company Number: None

PATIENT
  Age: 43 Year
  Sex: Male

DRUGS (2)
  1. NEXPLANON [Suspect]
     Active Substance: ETONOGESTREL
  2. ESTRONOGESTREL [Concomitant]

REACTIONS (6)
  - Pain [None]
  - Hypoaesthesia [None]
  - Migraine [None]
  - Dizziness [None]
  - Nausea [None]
  - Crying [None]

NARRATIVE: CASE EVENT DATE: 20230408
